FAERS Safety Report 13130466 (Version 2)
Quarter: 2018Q1

REPORT INFORMATION
  Report Type: Spontaneous
  Country: US (occurrence: US)
  Receive Date: 20170119
  Receipt Date: 20180115
  Transmission Date: 20180508
  Serious: No
  Sender: FDA-Public Use
  Company Number: US-BAUSCH-BL-2016-007661

PATIENT
  Age: 73 Year
  Sex: Female
  Weight: 75.82 kg

DRUGS (1)
  1. CLINDAGEL [Suspect]
     Active Substance: CLINDAMYCIN PHOSPHATE
     Indication: FOLLICULITIS
     Dosage: ONE APPLICATION TWICE DAILY
     Route: 061
     Dates: start: 201602

REACTIONS (2)
  - Drug ineffective for unapproved indication [Not Recovered/Not Resolved]
  - Off label use [Not Recovered/Not Resolved]

NARRATIVE: CASE EVENT DATE: 201602
